FAERS Safety Report 23375111 (Version 2)
Quarter: 2024Q1

REPORT INFORMATION
  Report Type: Spontaneous
  Country: US (occurrence: US)
  Receive Date: 20240106
  Receipt Date: 20240328
  Transmission Date: 20240410
  Serious: No
  Sender: FDA-Public Use
  Company Number: US-SA-SAC20240104000470

PATIENT
  Sex: Female

DRUGS (15)
  1. DUPIXENT [Suspect]
     Active Substance: DUPILUMAB
     Indication: Asthma
     Dosage: 300 MG, QOW
     Route: 058
  2. ALENDRONATE [Concomitant]
     Active Substance: ALENDRONATE SODIUM
  3. AMLODIPINE BESYLATE [Concomitant]
     Active Substance: AMLODIPINE BESYLATE
  4. AMOXICILLIN [Concomitant]
     Active Substance: AMOXICILLIN
  5. COMBIVENT RESPIMAT [Concomitant]
     Active Substance: ALBUTEROL SULFATE\IPRATROPIUM BROMIDE
  6. ELIQUIS [Concomitant]
     Active Substance: APIXABAN
  7. HYDROCODONE [Concomitant]
     Active Substance: HYDROCODONE
  8. IPRATROPIUM [Concomitant]
     Active Substance: IPRATROPIUM
  9. LISINOPRIL [Concomitant]
     Active Substance: LISINOPRIL
  10. ROSUVASTATIN [Concomitant]
     Active Substance: ROSUVASTATIN
  11. TRELEGY ELLIPTA [Concomitant]
     Active Substance: FLUTICASONE FUROATE\UMECLIDINIUM BROMIDE\VILANTEROL TRIFENATATE
  12. ASPIRIN [Concomitant]
     Active Substance: ASPIRIN
  13. CEFUROXIME [Concomitant]
     Active Substance: CEFUROXIME
     Dosage: 500MG
  14. OMEPRAZOLE [Concomitant]
     Active Substance: OMEPRAZOLE
     Dosage: 40MG
  15. METOPROLOL [Concomitant]
     Active Substance: METOPROLOL

REACTIONS (5)
  - Illness [Unknown]
  - Dyspnoea [Unknown]
  - Gait disturbance [Unknown]
  - Weight decreased [Unknown]
  - Drug ineffective [Unknown]
